FAERS Safety Report 7651342-8 (Version None)
Quarter: 2011Q3

REPORT INFORMATION
  Report Type: 
  Country: None (occurrence: None)
  Receive Date: 20110802
  Receipt Date: 20110719
  Transmission Date: 20111222
  Serious: Yes (Hospitalization)
  Sender: FDA-Public Use
  Company Number: PHFR2011GB04530

PATIENT
  Age: 68 Year
  Sex: Female

DRUGS (8)
  1. ATENOLOL [Concomitant]
     Dosage: 50 MG, QD
     Route: 048
     Dates: start: 20110321
  2. ASPIRIN [Concomitant]
     Dosage: 75 MG, QD
     Route: 048
     Dates: start: 20110321
  3. ENALAPRIL MALEATE [Concomitant]
     Dosage: UNK
     Route: 065
     Dates: start: 20090327
  4. BENDROFLUMETHIAZIDE [Concomitant]
     Dosage: 2.5 MG, QD
     Route: 065
     Dates: start: 20110321
  5. ACETAMINOPHEN [Concomitant]
     Dosage: 100 MG, UNK
     Route: 048
     Dates: start: 20100804
  6. AMITRIPTYLINE HCL [Concomitant]
     Dosage: 25 MG, QD
     Route: 048
     Dates: start: 20110321
  7. SIMVADURA [Concomitant]
     Dosage: 20 MG, QD
     Route: 048
  8. TERBINAFINE HCL [Suspect]
     Indication: TINEA PEDIS
     Dosage: 250 MG, QD
     Route: 048
     Dates: start: 20101129, end: 20110708

REACTIONS (7)
  - ALANINE AMINOTRANSFERASE INCREASED [None]
  - JAUNDICE CHOLESTATIC [None]
  - BLOOD BILIRUBIN INCREASED [None]
  - BLOOD ALKALINE PHOSPHATASE INCREASED [None]
  - C-REACTIVE PROTEIN INCREASED [None]
  - CHOLESTASIS [None]
  - GAMMA-GLUTAMYLTRANSFERASE INCREASED [None]
